FAERS Safety Report 12497290 (Version 3)
Quarter: 2016Q3

REPORT INFORMATION
  Report Type: Spontaneous
  Country: MN (occurrence: MN)
  Receive Date: 20160624
  Receipt Date: 20160713
  Transmission Date: 20161109
  Serious: Yes (Hospitalization)
  Sender: FDA-Public Use
  Company Number: MN-BAYER-2016-060982

PATIENT
  Age: 34 Year
  Sex: Female

DRUGS (1)
  1. ULTRAVIST [Suspect]
     Active Substance: IOPROMIDE
     Indication: COMPUTERISED TOMOGRAM THORAX
     Dosage: 100 ML, ONCE
     Route: 042
     Dates: start: 20160316, end: 20160316

REACTIONS (10)
  - Product quality issue [None]
  - Musculoskeletal stiffness [Recovered/Resolved]
  - Skin irritation [Recovered/Resolved]
  - Cheilitis [Recovered/Resolved]
  - Glossitis [Recovered/Resolved]
  - Tongue oedema [Recovered/Resolved]
  - Anaphylactic reaction [Recovered/Resolved]
  - Generalised oedema [Recovered/Resolved]
  - Dyspnoea [Recovered/Resolved]
  - Face oedema [Recovered/Resolved]
